FAERS Safety Report 8398449-8 (Version None)
Quarter: 2012Q2

REPORT INFORMATION
  Report Type: 
  Country: None (occurrence: None)
  Receive Date: 20120531
  Receipt Date: 20120523
  Transmission Date: 20120825
  Serious: Yes (Hospitalization)
  Sender: FDA-Public Use
  Company Number: US-BAYER-2012-019554

PATIENT
  Age: 24 Year
  Sex: Female
  Weight: 66 kg

DRUGS (31)
  1. BUPROPION HYDROCHLORIDE [Concomitant]
     Dosage: UNK
     Dates: start: 20081209
  2. ZOLPIDEM [Concomitant]
     Indication: INSOMNIA
     Dosage: 10 MG, UNK
     Route: 048
     Dates: start: 20081112
  3. ZOLPIDEM [Concomitant]
     Dosage: UNK
     Dates: start: 20081201
  4. PHENERGAN [Concomitant]
  5. YAZ [Suspect]
     Dosage: UNK
     Dates: start: 20071001, end: 20080901
  6. FAMOTIDINE [Concomitant]
     Dosage: UNK
     Dates: start: 20081204
  7. FAMOTIDINE [Concomitant]
     Dosage: UNK
     Dates: start: 20081231
  8. ONDANSETRON [Concomitant]
     Indication: NAUSEA
     Dosage: 4 MG, UNK
     Route: 048
     Dates: start: 20080601, end: 20090601
  9. METOCLOPRAMIDE [Concomitant]
     Dosage: UNK
     Dates: start: 20081229
  10. PROMETHAZINE [Concomitant]
     Dosage: 12.5 MG, UNK
     Dates: start: 20081126
  11. PEPCID [Concomitant]
  12. WELLBUTRIN [Concomitant]
     Indication: DEPRESSION
  13. FAMOTIDINE [Concomitant]
     Dosage: UNK
     Dates: start: 20081204
  14. PROMETHAZINE [Concomitant]
     Dosage: UNK
     Dates: start: 20081212
  15. PROMETHAZINE [Concomitant]
     Dosage: UNK
     Dates: start: 20081204
  16. FAMOTIDINE [Concomitant]
     Indication: GASTROOESOPHAGEAL REFLUX DISEASE
     Dosage: 20 MG, UNK
     Route: 048
     Dates: start: 20081201, end: 20090701
  17. SUMATRIPTAN SUCCINATE [Concomitant]
     Dosage: 6 MG/0.5% INJECTION
  18. YAZ [Suspect]
     Dosage: UNK
     Dates: start: 20110101, end: 20111101
  19. BUPROPION HYDROCHLORIDE [Concomitant]
     Dosage: UNK
     Dates: start: 20081231
  20. ZOLPIDEM [Concomitant]
     Dosage: UNK
     Dates: start: 20081231
  21. ONDANSETRON [Concomitant]
     Indication: VOMITING
     Dosage: UNK
     Dates: start: 20081204
  22. METOCLOPRAMIDE [Concomitant]
     Indication: VOMITING
     Dosage: UNK
     Dates: start: 20081204
  23. ZOFRAN [Concomitant]
  24. ONDANSETRON [Concomitant]
     Dosage: UNK
     Dates: start: 20081230
  25. VITAMIN B6 [Concomitant]
     Dosage: UNK
     Route: 048
     Dates: start: 20081204
  26. BETAMETHASONE DIPROPIONATE [Concomitant]
     Dosage: 0.05 %, UNK
     Route: 061
     Dates: start: 20081112
  27. YAZ [Suspect]
     Dosage: UNK
     Dates: start: 20090801, end: 20100201
  28. BUPROPION HYDROCHLORIDE [Concomitant]
     Indication: DEPRESSION
     Dosage: 150 MG, UNK
     Route: 048
     Dates: start: 20081201
  29. METOCLOPRAMIDE [Concomitant]
     Indication: NAUSEA
     Dosage: 10 MG, UNK
     Route: 048
     Dates: start: 20081201
  30. PROMETHAZINE [Concomitant]
     Dosage: 25 MG, SUPPOSITORY
     Dates: start: 20081126
  31. REGLAN [Concomitant]

REACTIONS (9)
  - CHOLECYSTITIS CHRONIC [None]
  - BILIARY COLIC [None]
  - CHOLELITHIASIS [None]
  - EMOTIONAL DISTRESS [None]
  - INJURY [None]
  - ABDOMINAL PAIN [None]
  - PREMATURE BABY [None]
  - HYPEREMESIS GRAVIDARUM [None]
  - PREGNANCY ON ORAL CONTRACEPTIVE [None]
